FAERS Safety Report 11927944 (Version 4)
Quarter: 2017Q1

REPORT INFORMATION
  Report Type: Spontaneous
  Country: CH (occurrence: CH)
  Receive Date: 20160119
  Receipt Date: 20170217
  Transmission Date: 20170428
  Serious: Yes (Other)
  Sender: FDA-Public Use
  Company Number: CH-009507513-1601CHE005940

PATIENT
  Age: 26 Year
  Sex: Female
  Weight: 50 kg

DRUGS (8)
  1. EFFEXOR XR [Suspect]
     Active Substance: VENLAFAXINE HYDROCHLORIDE
     Dosage: 37.5 MG, TIW
     Route: 048
     Dates: start: 201608, end: 201611
  2. VITAMIN D3 WILD [Concomitant]
     Dosage: 80 DROPS PER WEEK
     Route: 048
     Dates: start: 201501
  3. EFFEXOR XR [Suspect]
     Active Substance: VENLAFAXINE HYDROCHLORIDE
     Indication: DEPRESSION
     Dosage: 75 MG, QD
     Route: 048
     Dates: start: 201501, end: 201608
  4. EFFEXOR XR [Suspect]
     Active Substance: VENLAFAXINE HYDROCHLORIDE
     Dosage: 75 MG, QD
     Route: 048
     Dates: start: 201611
  5. SPASMO-CANULASE [Concomitant]
     Active Substance: AMYLASE\CELLULASE\GLUTAMIC ACID HYDROCHLORIDE\PANCRELIPASE\PEPSIN\PROTEASE
     Dosage: 1 DF, TID
     Route: 048
     Dates: start: 201505
  6. REMERON [Suspect]
     Active Substance: MIRTAZAPINE
     Dosage: 30 MG, QD
     Route: 048
     Dates: start: 201501
  7. CALCIUM SANDOZ D [Concomitant]
     Dosage: ONCE DAILY
     Route: 048
     Dates: start: 201501
  8. RESOURCE PROTEIN [Concomitant]
     Dosage: ONCE DAILY
     Route: 048
     Dates: start: 201501, end: 201509

REACTIONS (2)
  - Osteonecrosis [Not Recovered/Not Resolved]
  - Osteonecrosis [Not Recovered/Not Resolved]

NARRATIVE: CASE EVENT DATE: 201510
